FAERS Safety Report 25328921 (Version 1)
Quarter: 2025Q2

REPORT INFORMATION
  Report Type: Spontaneous
  Country: RU (occurrence: RU)
  Receive Date: 20250519
  Receipt Date: 20250519
  Transmission Date: 20250716
  Serious: Yes (Other)
  Sender: NOVO NORDISK
  Company Number: None

PATIENT
  Age: 49 Year
  Sex: Female
  Weight: 67 kg

DRUGS (4)
  1. ACTRAPID [Suspect]
     Active Substance: INSULIN HUMAN
     Indication: Diabetic metabolic decompensation
     Dosage: 6 IU, QD
     Route: 058
     Dates: start: 20250416, end: 20250416
  2. NOVORAPID [Suspect]
     Active Substance: INSULIN ASPART
     Indication: Diabetic metabolic decompensation
     Dosage: 6 IU, QD
     Route: 058
     Dates: start: 20250418, end: 20250418
  3. METFORMIN [Concomitant]
     Active Substance: METFORMIN HYDROCHLORIDE
  4. URSODIOL [Concomitant]
     Active Substance: URSODIOL

REACTIONS (2)
  - Erythema [Recovering/Resolving]
  - Urticaria [Recovering/Resolving]

NARRATIVE: CASE EVENT DATE: 20250416
